FAERS Safety Report 17511964 (Version 1)
Quarter: 2020Q1

REPORT INFORMATION
  Report Type: Spontaneous
  Country: US (occurrence: US)
  Receive Date: 20200308
  Receipt Date: 20200308
  Transmission Date: 20200409
  Serious: No
  Sender: FDA-Public Use
  Company Number: US-TEVA-2020-US-1197122

PATIENT
  Sex: Female

DRUGS (1)
  1. SYNRIBO [Suspect]
     Active Substance: OMACETAXINE MEPESUCCINATE
     Indication: CHRONIC MYELOID LEUKAEMIA
     Dosage: UNIT DOSE : 2.4MG/0.69ML?SYNRIBO 3.5MG/ML BID FOR 3 DAYS OF 28 DAY CYCLE
     Dates: start: 20190306

REACTIONS (2)
  - Asthenia [Unknown]
  - Fatigue [Unknown]
